FAERS Safety Report 14732222 (Version 2)
Quarter: 2018Q2

REPORT INFORMATION
  Report Type: Report from Study
  Country: US (occurrence: US)
  Receive Date: 20180409
  Receipt Date: 20180417
  Transmission Date: 20180711
  Serious: Yes (Other)
  Sender: FDA-Public Use
  Company Number: US-ROCHE-2103136

PATIENT

DRUGS (2)
  1. LENALIDOMIDE [Suspect]
     Active Substance: LENALIDOMIDE
     Indication: B-CELL LYMPHOMA
     Dosage: CYCLE 1-6?PARTICIPANTS RECEIVE 6 CYCLES OF LENALIDOMIDE, 20 MG DAILY ON DAYS 1-21 OF A 28 DAY CYCLE.
     Route: 065
  2. OBINUTUZUMAB. [Suspect]
     Active Substance: OBINUTUZUMAB
     Indication: B-CELL LYMPHOMA
     Dosage: CYCLE 1-6?1000 MG ON DAYS 1, 8, AND 15 OF CYCLE 1 AND DAY 1 OF CYCLES 2 THROUGH 6. PARTICIPANTS THEN
     Route: 042

REACTIONS (1)
  - Prostatic specific antigen increased [Recovered/Resolved]

NARRATIVE: CASE EVENT DATE: 20170706
